FAERS Safety Report 4889060-1 (Version None)
Quarter: 2005Q4

REPORT INFORMATION
  Report Type: 
  Country: None (occurrence: None)
  Receive Date: 20051216
  Receipt Date: 20050921
  Transmission Date: 20060501
  Serious: No
  Sender: FDA-Public Use
  Company Number: USA0509108468

PATIENT
  Age: 48 Year
  Sex: Male

DRUGS (3)
  1. CIALIS [Suspect]
     Indication: ERECTILE DYSFUNCTION
     Dosage: 20 MG
  2. PROPOXYPHENE HYDROCHLORIDE CAP [Concomitant]
  3. SKELAXIN [Concomitant]

REACTIONS (3)
  - HEADACHE [None]
  - MYALGIA [None]
  - THERAPEUTIC RESPONSE DECREASED [None]
